FAERS Safety Report 20001637 (Version 1)
Quarter: 2021Q4

REPORT INFORMATION
  Report Type: Spontaneous
  Country: GB (occurrence: GB)
  Receive Date: 20211027
  Receipt Date: 20211027
  Transmission Date: 20220303
  Serious: Yes (Other)
  Sender: FDA-Public Use
  Company Number: GB-CISBIO-2021000688

PATIENT
  Age: 27 Year
  Sex: Female
  Weight: 63 kg

DRUGS (4)
  1. TECHNETIUM TC-99M ALBUMIN AGGREGATED [Suspect]
     Active Substance: TECHNETIUM TC-99M ALBUMIN AGGREGATED
     Dosage: TOTAL
     Route: 042
     Dates: start: 20210923, end: 20210923
  2. TECHNETIUM TC-99M ALBUMIN AGGREGATED [Suspect]
     Active Substance: TECHNETIUM TC-99M ALBUMIN AGGREGATED
     Route: 042
     Dates: start: 20210924, end: 20210924
  3. ULTRA-TECHNEKOW [Suspect]
     Active Substance: TECHNETIUM TC-99M
     Route: 042
     Dates: start: 20210923, end: 20210923
  4. ULTRA-TECHNEKOW [Suspect]
     Active Substance: TECHNETIUM TC-99M
     Route: 042
     Dates: start: 20210924, end: 20210924

REACTIONS (4)
  - Maternal exposure during pregnancy [Unknown]
  - Radioisotope scan abnormal [Recovered/Resolved]
  - Drug ineffective [Recovered/Resolved]
  - Radiation overdose [Recovered/Resolved]

NARRATIVE: CASE EVENT DATE: 20210923
